FAERS Safety Report 5429266-6 (Version None)
Quarter: 2007Q3

REPORT INFORMATION
  Report Type: 
  Country: None (occurrence: None)
  Receive Date: 20070829
  Receipt Date: 20070823
  Transmission Date: 20080115
  Serious: Yes (Congenital Anomaly, Other)
  Sender: FDA-Public Use
  Company Number: GB-AVENTIS-200521120GDDC

PATIENT
  Sex: Male

DRUGS (7)
  1. ARAVA [Suspect]
     Indication: RHEUMATOID ARTHRITIS
     Route: 064
     Dates: start: 20010501, end: 20020201
  2. DICLOFENAC SODIUM [Concomitant]
     Indication: RHEUMATOID ARTHRITIS
     Route: 064
     Dates: start: 19940101
  3. PREDNISOLONE [Concomitant]
     Indication: RHEUMATOID ARTHRITIS
     Route: 064
     Dates: start: 19970901
  4. ALENDRONATE SODIUM [Concomitant]
     Indication: PROPHYLAXIS
     Route: 064
     Dates: start: 19990101
  5. AMITRIPTYLINE HCL [Concomitant]
     Dosage: DOSE: UNK
     Route: 064
     Dates: start: 19940701
  6. PARACETAMOL [Concomitant]
     Route: 064
     Dates: start: 19940101
  7. CHOLESTYRAMINE [Concomitant]
     Dosage: DOSE: UNK
     Route: 064

REACTIONS (4)
  - BLINDNESS CONGENITAL [None]
  - CEREBRAL PALSY [None]
  - DRUG EXPOSURE DURING PREGNANCY [None]
  - PREMATURE BABY [None]
